FAERS Safety Report 6611239-9 (Version None)
Quarter: 2010Q1

REPORT INFORMATION
  Report Type: 
  Country: None (occurrence: None)
  Receive Date: 20100301
  Receipt Date: 20100301
  Transmission Date: 20100710
  Serious: No
  Sender: FDA-Public Use
  Company Number: None

PATIENT
  Age: 75 Year
  Sex: Female
  Weight: 69.5 kg

DRUGS (2)
  1. ETOMIDATE (AMIDALE) [Suspect]
     Indication: CYSTOGRAM
     Dosage: 14 MG ONCE IV BOLUS
     Route: 040
     Dates: start: 20100222, end: 20100222
  2. ETOMIDATE (AMIDALE) [Suspect]
     Indication: UROGRAM
     Dosage: 14 MG ONCE IV BOLUS
     Route: 040
     Dates: start: 20100222, end: 20100222

REACTIONS (1)
  - NO THERAPEUTIC RESPONSE [None]
